FAERS Safety Report 8500999-8 (Version None)
Quarter: 2012Q2

REPORT INFORMATION
  Report Type: 
  Country: None (occurrence: None)
  Receive Date: 20120405
  Receipt Date: 20100222
  Transmission Date: 20120825
  Serious: Yes (Hospitalization, Other)
  Sender: FDA-Public Use
  Company Number: PHEH2010US02469

PATIENT
  Age: 81 Year
  Sex: Male

DRUGS (5)
  1. RECLAST [Suspect]
     Indication: OSTEOPOROSIS
     Dosage: 5 MG, IV, INTRAVENOUS
     Route: 042
     Dates: start: 20100119, end: 20100119
  2. LASIX [Concomitant]
  3. TOPROL-XL [Concomitant]
  4. SYNTHROID [Concomitant]
  5. DIGOXIN [Concomitant]

REACTIONS (7)
  - MYALGIA [None]
  - NAUSEA [None]
  - ASTHENIA [None]
  - PYREXIA [None]
  - INFLUENZA [None]
  - MOVEMENT DISORDER [None]
  - DEHYDRATION [None]
